FAERS Safety Report 17269972 (Version 1)
Quarter: 2020Q1

REPORT INFORMATION
  Report Type: Spontaneous
  Country: US (occurrence: US)
  Receive Date: 20200114
  Receipt Date: 20200114
  Transmission Date: 20200409
  Serious: No
  Sender: FDA-Public Use
  Company Number: NVSC2020US007244

PATIENT
  Age: 87 Year
  Sex: Female

DRUGS (3)
  1. ENALAPRIL [Suspect]
     Active Substance: ENALAPRIL
     Indication: BLOOD PRESSURE ABNORMAL
     Dosage: UNK
     Route: 065
  2. ENALAPRIL MALEATE AND HYDROCHLOROTHIAZIDE [Suspect]
     Active Substance: ENALAPRIL MALEATE\HYDROCHLOROTHIAZIDE
     Indication: BLOOD PRESSURE ABNORMAL
     Dosage: UNK
     Route: 065
  3. VOLTAREN [Suspect]
     Active Substance: DICLOFENAC SODIUM
     Indication: MUSCULOSKELETAL DISCOMFORT
     Dosage: UNK
     Route: 061

REACTIONS (7)
  - Tinnitus [Unknown]
  - Muscle discomfort [Not Recovered/Not Resolved]
  - Product administered at inappropriate site [Unknown]
  - Blood pressure increased [Recovered/Resolved]
  - Drug ineffective for unapproved indication [Unknown]
  - Blood pressure decreased [Recovered/Resolved]
  - Product use in unapproved indication [Unknown]
